FAERS Safety Report 9406359 (Version 3)
Quarter: 2014Q1

REPORT INFORMATION
  Report Type: Report from Study
  Country: PL (occurrence: PL)
  Receive Date: 20130718
  Receipt Date: 20140109
  Transmission Date: 20141002
  Serious: Yes (Other)
  Sender: FDA-Public Use
  Company Number: PL-ROCHE-1249855

PATIENT
  Sex: Male
  Weight: 75 kg

DRUGS (6)
  1. MABTHERA [Suspect]
     Indication: WALDENSTROM^S MACROGLOBULINAEMIA
     Route: 042
     Dates: start: 20130528, end: 20130712
  2. INSULIN ACTRAPID [Concomitant]
     Indication: DIABETES MELLITUS
     Route: 058
     Dates: start: 20130711
  3. SIMVASTATIN [Concomitant]
     Indication: HYPERTENSION
     Route: 048
     Dates: start: 20130711
  4. BETALOC ZOK [Concomitant]
     Indication: HYPERTENSION
     Route: 048
     Dates: start: 20130711
  5. ENARENAL [Concomitant]
     Indication: HYPERTENSION
     Route: 048
     Dates: start: 20130711
  6. ENCORTON [Concomitant]
     Indication: THROMBOCYTOPENIA
     Dosage: 30 MG IN THE MORNING AND 20 IN THE EVENING
     Route: 048
     Dates: start: 20130712, end: 20130716

REACTIONS (8)
  - Respiratory disorder [Unknown]
  - Loss of consciousness [Unknown]
  - Malaise [Unknown]
  - Chills [Unknown]
  - Body temperature increased [Unknown]
  - Blood pressure decreased [Unknown]
  - Blood glucose decreased [Unknown]
  - Rash [Unknown]
